FAERS Safety Report 23737055 (Version 2)
Quarter: 2024Q2

REPORT INFORMATION
  Report Type: Report from Study
  Country: SV (occurrence: SV)
  Receive Date: 20240412
  Receipt Date: 20240528
  Transmission Date: 20240715
  Serious: Yes (Hospitalization)
  Sender: FDA-Public Use
  Company Number: SV-BAYER-2024A051121

PATIENT
  Age: 64 Year
  Sex: Female

DRUGS (2)
  1. NEXAVAR [Suspect]
     Active Substance: SORAFENIB
     Indication: Renal cell carcinoma
     Dosage: 400 MG, BID
     Dates: start: 20211015, end: 202402
  2. NEXAVAR [Suspect]
     Active Substance: SORAFENIB
     Indication: Renal cell carcinoma
     Dosage: UNK
     Dates: end: 202403

REACTIONS (11)
  - Blood electrolytes decreased [Recovering/Resolving]
  - Blood sodium decreased [Recovering/Resolving]
  - Gastritis [Unknown]
  - Blood magnesium decreased [Unknown]
  - Blood albumin decreased [Unknown]
  - Blood sodium decreased [Unknown]
  - Blood magnesium decreased [Unknown]
  - Blood albumin decreased [Unknown]
  - Blood magnesium decreased [Unknown]
  - Blood sodium decreased [Unknown]
  - Blood albumin decreased [Unknown]

NARRATIVE: CASE EVENT DATE: 20240222
